FAERS Safety Report 22635400 (Version 1)
Quarter: 2023Q2

REPORT INFORMATION
  Report Type: Spontaneous
  Country: US (occurrence: None)
  Receive Date: 20230620
  Receipt Date: 20230620
  Transmission Date: 20230721
  Serious: No
  Sender: FDA-Public Use
  Company Number: None

PATIENT
  Sex: Male

DRUGS (1)
  1. NEUPOGEN [Suspect]
     Active Substance: FILGRASTIM
     Indication: Plasma cell myeloma
     Dosage: OTHER STRENGTH : 300MCG/ML VIAL;?OTHER FREQUENCY : QD TUES-SAT;?

REACTIONS (1)
  - Neutrophil count decreased [None]
